FAERS Safety Report 16753562 (Version 1)
Quarter: 2019Q3

REPORT INFORMATION
  Report Type: Report from Study
  Country: ES (occurrence: ES)
  Receive Date: 20190829
  Receipt Date: 20190829
  Transmission Date: 20191005
  Serious: Yes (Hospitalization)
  Sender: FDA-Public Use
  Company Number: ES-TEVA-2019-ES-1098055

PATIENT
  Age: 60 Year
  Sex: Male

DRUGS (5)
  1. HIDROSALURETIL 25 MG COMPRIMIDOS EFG, 20 COMPRIMIDOS [Interacting]
     Active Substance: HYDROCHLOROTHIAZIDE
     Indication: HYPERTENSION
     Dosage: 25 MILLIGRAMS, 1 DAYS
     Route: 048
     Dates: start: 20180424
  2. ENALAPRIL MALEATO (2142MA) [Suspect]
     Active Substance: ENALAPRIL MALEATE
     Indication: HYPERTENSION
     Dosage: 10 MILLIGRAMS, 1 DAYS
     Route: 048
     Dates: start: 20180531, end: 20180704
  3. RITONAVIR (5093A) [Concomitant]
     Indication: HIV INFECTION
     Dosage: 200 MILLIGRAMS, 1 DAYS
     Route: 048
     Dates: start: 20170324
  4. RALTEGRAVIR (8234A) [Concomitant]
     Indication: HIV INFECTION
     Dosage: 400 MILLIGRAMS, 1 DAYS
     Route: 048
     Dates: start: 20170324
  5. DARUNAVIR (8074A) [Concomitant]
     Indication: HIV INFECTION
     Dosage: 600 MILLIGRAMS, 1 DAYS
     Route: 048
     Dates: start: 20170324

REACTIONS (2)
  - Acute kidney injury [Recovered/Resolved]
  - Drug interaction [Unknown]

NARRATIVE: CASE EVENT DATE: 20180705
